FAERS Safety Report 15944726 (Version 1)
Quarter: 2019Q1

REPORT INFORMATION
  Report Type: Report from Study
  Country: US (occurrence: US)
  Receive Date: 20190211
  Receipt Date: 20190211
  Transmission Date: 20190417
  Serious: No
  Sender: FDA-Public Use
  Company Number: US-ACADIA PHARMACEUTICALS INC.-ACA-2018-011071

PATIENT
  Age: 81 Year
  Sex: Male

DRUGS (2)
  1. NUPLAZID [Suspect]
     Active Substance: PIMAVANSERIN TARTRATE
     Indication: PRODUCT USED FOR UNKNOWN INDICATION
     Dosage: 34 MG, QD TABLET
     Route: 048
     Dates: start: 201811, end: 201811
  2. NUPLAZID [Suspect]
     Active Substance: PIMAVANSERIN TARTRATE
     Dosage: 34 MG, QD CAPSULE
     Route: 048
     Dates: start: 201811

REACTIONS (5)
  - Confusional state [Unknown]
  - Pollakiuria [Not Recovered/Not Resolved]
  - Hallucination [Recovering/Resolving]
  - Therapeutic response unexpected [Unknown]
  - Libido increased [Not Recovered/Not Resolved]

NARRATIVE: CASE EVENT DATE: 201811
